FAERS Safety Report 6985611-1 (Version None)
Quarter: 2010Q3

REPORT INFORMATION
  Report Type: 
  Country: None (occurrence: None)
  Receive Date: 20100915
  Receipt Date: 20100909
  Transmission Date: 20110219
  Serious: Yes (Other)
  Sender: FDA-Public Use
  Company Number: FR-BRISTOL-MYERS SQUIBB COMPANY-15281645

PATIENT
  Age: 37 Year
  Sex: Female

DRUGS (3)
  1. SUSTIVA [Suspect]
     Indication: HIV INFECTION
     Dosage: INTERRUPTED ON 03DEC09 UNK:RESTARTED
  2. VIREAD [Suspect]
     Indication: HIV INFECTION
     Dosage: INTERRUPTED ON 03DEC09 UNK:RESTARTED
  3. KALETRA [Suspect]
     Indication: HIV INFECTION
     Dosage: INTERRUPTED ON 03DEC09 UNK:RESTARTED; 1DF=200 MG/50 MG

REACTIONS (2)
  - ABORTION SPONTANEOUS [None]
  - PREGNANCY [None]
